FAERS Safety Report 20228750 (Version 1)
Quarter: 2021Q4

REPORT INFORMATION
  Report Type: Spontaneous
  Country: US (occurrence: US)
  Receive Date: 20211225
  Receipt Date: 20211225
  Transmission Date: 20220303
  Serious: No
  Sender: FDA-Public Use
  Company Number: US-SANOFI-00901619

PATIENT
  Age: 9 Month
  Sex: Male

DRUGS (3)
  1. TUBERSOL [Suspect]
     Active Substance: TUBERCULIN PURIFIED PROTEIN DERIVATIVE
     Indication: Tuberculin test
     Dates: start: 20211110, end: 20211110
  2. PNEUMOCOCCAL VACCINE POLYVALENT [Concomitant]
     Active Substance: PNEUMOCOCCAL VACCINE POLYVALENT
  3. FLULAVAL [Concomitant]

REACTIONS (1)
  - Poor quality product administered [Unknown]

NARRATIVE: CASE EVENT DATE: 20211110
